FAERS Safety Report 5290706-7 (Version None)
Quarter: 2007Q2

REPORT INFORMATION
  Report Type: 
  Country: None (occurrence: None)
  Receive Date: 20070405
  Receipt Date: 20070405
  Transmission Date: 20071010
  Serious: Yes (Life-Threatening, Hospitalization)
  Sender: FDA-Public Use
  Company Number: None

PATIENT
  Age: 32 Year
  Sex: Female

DRUGS (4)
  1. ACETAMINOPHEN [Suspect]
     Indication: PAIN
     Dosage: }5GM PO OTU
     Route: 048
     Dates: start: 20070113
  2. SEROQUEL [Concomitant]
  3. KLONOPIN [Concomitant]
  4. DEPO OCP [Concomitant]

REACTIONS (5)
  - ACUTE HEPATIC FAILURE [None]
  - CHEST PAIN [None]
  - INTERNATIONAL NORMALISED RATIO INCREASED [None]
  - NAUSEA [None]
  - OVERDOSE [None]
